FAERS Safety Report 10677525 (Version 1)
Quarter: 2014Q4

REPORT INFORMATION
  Report Type: Spontaneous
  Country: GB (occurrence: GB)
  Receive Date: 20141228
  Receipt Date: 20141228
  Transmission Date: 20150529
  Serious: Yes (Other)
  Sender: FDA-Public Use
  Company Number: PHHY2014GB166949

PATIENT
  Age: 26 Year
  Sex: Female

DRUGS (1)
  1. TOPIRAMATE. [Suspect]
     Active Substance: TOPIRAMATE
     Indication: MIGRAINE PROPHYLAXIS
     Route: 048
     Dates: start: 20140626, end: 20140629

REACTIONS (8)
  - Headache [Unknown]
  - Intraocular pressure increased [Unknown]
  - Ciliary body disorder [Unknown]
  - Chorioretinal disorder [Unknown]
  - Vision blurred [Unknown]
  - Angle closure glaucoma [Recovered/Resolved]
  - Blindness [Unknown]
  - Flat anterior chamber of eye [Unknown]

NARRATIVE: CASE EVENT DATE: 20140626
